FAERS Safety Report 8295833-8 (Version None)
Quarter: 2012Q2

REPORT INFORMATION
  Report Type: 
  Country: None (occurrence: None)
  Receive Date: 20120418
  Receipt Date: 20120410
  Transmission Date: 20120825
  Serious: Yes (Other)
  Sender: FDA-Public Use
  Company Number: US-CELGENEUS-163-21880-12011004

PATIENT
  Sex: Male
  Weight: 68.1 kg

DRUGS (15)
  1. FLAXSEED OIL [Concomitant]
     Route: 065
  2. FISH OIL [Concomitant]
     Route: 065
  3. MORPHINE SULFATE [Concomitant]
     Route: 065
  4. ASPIRIN [Concomitant]
     Route: 065
  5. REVLIMID [Suspect]
     Indication: MYELOFIBROSIS
     Dosage: 10 MILLIGRAM
     Route: 048
     Dates: start: 20100402, end: 20120301
  6. LISINOPRIL [Concomitant]
     Route: 065
  7. PRAVASTATIN [Concomitant]
     Route: 065
  8. TRAMADOL [Concomitant]
     Route: 065
  9. MULTI-VITAMINS [Concomitant]
     Route: 065
  10. NIACIN [Concomitant]
     Route: 065
  11. CALCIUM CARBONATE [Concomitant]
     Route: 065
  12. VITAMIN B-12 [Concomitant]
     Route: 065
  13. ATENOLOL [Concomitant]
     Route: 065
  14. CO Q 10 [Concomitant]
     Route: 065
  15. ASCORBIC ACID [Concomitant]
     Route: 065

REACTIONS (2)
  - PAIN [None]
  - MALIGNANT MELANOMA [None]
